FAERS Safety Report 9517902 (Version 1)
Quarter: 2013Q3

REPORT INFORMATION
  Report Type: Spontaneous
  Country: US (occurrence: None)
  Receive Date: 20130910
  Receipt Date: 20130910
  Transmission Date: 20140515
  Serious: Yes (Life-Threatening, Hospitalization)
  Sender: FDA-Public Use
  Company Number: None

PATIENT
  Age: 27 Year
  Sex: Female
  Weight: 62.14 kg

DRUGS (1)
  1. YAZ [Suspect]
     Indication: CONTRACEPTION
     Dosage: 1 PILL, ONCE DAILY
     Route: 048
     Dates: start: 20060717, end: 20130722

REACTIONS (5)
  - Superior sagittal sinus thrombosis [None]
  - Transverse sinus thrombosis [None]
  - Intracranial venous sinus thrombosis [None]
  - Jugular vein thrombosis [None]
  - Intracranial pressure increased [None]
